FAERS Safety Report 20162496 (Version 4)
Quarter: 2022Q1

REPORT INFORMATION
  Report Type: Spontaneous
  Country: JP (occurrence: JP)
  Receive Date: 20211208
  Receipt Date: 20220121
  Transmission Date: 20220423
  Serious: Yes (Hospitalization, Disabling)
  Sender: FDA-Public Use
  Company Number: JP-JNJFOC-20211203560

PATIENT
  Age: 68 Year
  Sex: Female
  Weight: 40.5 kg

DRUGS (16)
  1. SIMPONI [Suspect]
     Active Substance: GOLIMUMAB
     Indication: Rheumatoid arthritis
     Route: 058
     Dates: start: 20211104, end: 20211104
  2. ACETAMINOPHEN [Suspect]
     Active Substance: ACETAMINOPHEN
     Indication: Pyrexia
     Route: 065
     Dates: start: 20211106
  3. ACETAMINOPHEN [Suspect]
     Active Substance: ACETAMINOPHEN
     Route: 041
     Dates: start: 20211113, end: 20211113
  4. ACETAMINOPHEN [Suspect]
     Active Substance: ACETAMINOPHEN
     Dosage: 9 AM, 5 PM
     Route: 041
     Dates: start: 20211114, end: 20211117
  5. PREDONINE [Concomitant]
     Active Substance: PREDNISOLONE
     Route: 065
     Dates: start: 20211104
  6. AMLODIPINE [Concomitant]
     Active Substance: AMLODIPINE BESYLATE
     Route: 065
     Dates: start: 20211104
  7. ROSUVASTATIN [Concomitant]
     Active Substance: ROSUVASTATIN
     Route: 065
     Dates: start: 20211104
  8. IGURATIMOD [Concomitant]
     Active Substance: IGURATIMOD
     Route: 065
     Dates: start: 20211104
  9. MAGNESIUM OXIDE [Concomitant]
     Active Substance: MAGNESIUM OXIDE
     Route: 065
     Dates: start: 20211104
  10. NEUROVITAN [CYANOCOBALAMIN;OCTOTIAMINE;PYRIDOXINE HYDROCHLORIDE;RIBOFL [Concomitant]
     Dosage: DOSE UNKNOWN
     Route: 065
     Dates: start: 20211104
  11. LANSOPRAZOLE [Concomitant]
     Active Substance: LANSOPRAZOLE
     Route: 065
     Dates: start: 20211104
  12. SULFAMETHOXAZOLE\TRIMETHOPRIM [Concomitant]
     Active Substance: SULFAMETHOXAZOLE\TRIMETHOPRIM
     Dosage: DOSE UNKNOWN
     Route: 048
     Dates: start: 20211104
  13. XYLOCAINE [Concomitant]
     Active Substance: LIDOCAINE HYDROCHLORIDE
     Dosage: DOSE UNKNOWN
     Route: 065
     Dates: start: 20211106
  14. FUNGIZONE [Concomitant]
     Active Substance: AMPHOTERICIN B
     Dosage: DOSE UNKNOWN
     Route: 048
     Dates: start: 20211108
  15. TERIPARATIDE [Concomitant]
     Active Substance: TERIPARATIDE
     Dosage: DOSE UNKNOWN
     Route: 065
     Dates: start: 20211115
  16. TERIPARATIDE [Concomitant]
     Active Substance: TERIPARATIDE
     Dosage: DOSE UNKNOWN
     Route: 065
     Dates: start: 20211115

REACTIONS (3)
  - Hepatic function abnormal [Recovering/Resolving]
  - Pancytopenia [Recovering/Resolving]
  - Asthenia [Unknown]

NARRATIVE: CASE EVENT DATE: 20211113
